FAERS Safety Report 8913437 (Version 1)
Quarter: 2012Q4

REPORT INFORMATION
  Report Type: 
  Country: BR (occurrence: BR)
  Receive Date: 20121116
  Receipt Date: 20121116
  Transmission Date: 20130627
  Serious: Yes (Other)
  Sender: FDA-Public Use
  Company Number: BR-ROCHE-1154565

PATIENT
  Age: 60 Year
  Sex: Male
  Weight: 65.8 kg

DRUGS (4)
  1. PEGASYS [Suspect]
     Indication: CHRONIC HEPATITIS C
     Route: 065
  2. VICTRELIS [Concomitant]
     Indication: CHRONIC HEPATITIS C
     Route: 048
  3. CAPTOPRIL [Concomitant]
     Indication: HYPERTENSION
     Route: 065
  4. RIBAVIRIN [Concomitant]
     Indication: CHRONIC HEPATITIS C
     Route: 065

REACTIONS (7)
  - Dizziness [Recovering/Resolving]
  - Tremor [Recovering/Resolving]
  - Syncope [Recovering/Resolving]
  - Tinnitus [Recovering/Resolving]
  - Sluggishness [Recovering/Resolving]
  - Pain [Recovering/Resolving]
  - Malaise [Unknown]
